FAERS Safety Report 5772077-2 (Version None)
Quarter: 2008Q2

REPORT INFORMATION
  Report Type: 
  Country: None (occurrence: None)
  Receive Date: 20080613
  Receipt Date: 20080606
  Transmission Date: 20081010
  Serious: Yes (Other)
  Sender: FDA-Public Use
  Company Number: IE-ASTRAZENECA-2008GB00995

PATIENT
  Age: 16732 Day
  Sex: Male
  Weight: 139 kg

DRUGS (16)
  1. CRESTOR [Suspect]
     Indication: BLOOD CHOLESTEROL INCREASED
     Route: 048
     Dates: start: 20080208
  2. BECONASE [Concomitant]
     Dates: start: 20050510
  3. GLUCAGON [Concomitant]
     Dosage: 1MG AMP
     Dates: start: 20010823
  4. HYPOSTOP [Concomitant]
     Dosage: 3 TUBES
     Dates: start: 20010823
  5. ISTIN [Concomitant]
     Dates: start: 20010528
  6. KETO DIAZTIX [Concomitant]
  7. LEVEMIR [Concomitant]
     Dosage: NOVOPEN 3 PENFIL
     Dates: start: 20071112
  8. MICARDIS [Concomitant]
     Dates: start: 20040426
  9. MIXTARD HUMAN 30/70 [Concomitant]
     Dosage: 4 VIALS
     Dates: start: 20010528
  10. NOVOFINE NEEDLES 0.3X8MM [Concomitant]
  11. NOVORAPID [Concomitant]
     Dosage: PENFIL NOVOPEN
     Dates: start: 20071112
  12. SERETIDE DISKUS [Concomitant]
     Dates: start: 20031216
  13. ZOLPIDEM TARTRATE [Concomitant]
     Dates: start: 20080128
  14. VENTOLIN DISKUS [Concomitant]
     Dates: start: 20060404
  15. VENTOLIN DISKUS [Concomitant]
     Dates: start: 20060404
  16. VIAGRA [Concomitant]
     Dates: start: 20080218

REACTIONS (1)
  - HYPOGLYCAEMIA [None]
